FAERS Safety Report 9740200 (Version 1)
Quarter: 2013Q4

REPORT INFORMATION
  Report Type: Spontaneous
  Country: US (occurrence: US)
  Receive Date: 20131209
  Receipt Date: 20131209
  Transmission Date: 20140711
  Serious: No
  Sender: FDA-Public Use
  Company Number: US-PFIZER INC-2013350472

PATIENT
  Sex: Female

DRUGS (3)
  1. GABAPENTIN [Suspect]
     Indication: RESTLESS LEGS SYNDROME
     Dosage: 400 MG, UNK (MORE THAN ONE 400 MG CAPSULE)
  2. GABAPENTIN [Suspect]
     Indication: NERVOUS SYSTEM DISORDER
     Dosage: 400 MG, 1X/DAY
  3. GABAPENTIN [Suspect]
     Dosage: 700 MG, UNK (400 MG CAPSULE AND IF SHE NEEDS MORE MEDICATION SHE TAKES 300 MG CAPSULES)

REACTIONS (3)
  - Off label use [Unknown]
  - Headache [Not Recovered/Not Resolved]
  - Product taste abnormal [Unknown]
